FAERS Safety Report 19776440 (Version 2)
Quarter: 2021Q3

REPORT INFORMATION
  Report Type: Spontaneous
  Country: FR (occurrence: FR)
  Receive Date: 20210901
  Receipt Date: 20210908
  Transmission Date: 20211014
  Serious: Yes (Death, Life-Threatening)
  Sender: FDA-Public Use
  Company Number: FR-PFIZER INC-202101094750

PATIENT
  Age: 57 Year
  Sex: Female
  Weight: 33 kg

DRUGS (2)
  1. CYTARABINE. [Suspect]
     Active Substance: CYTARABINE
     Indication: CHEMOTHERAPY
     Dosage: 40 MG
     Route: 065
     Dates: start: 20210713, end: 20210727
  2. CYTARABINE. [Suspect]
     Active Substance: CYTARABINE
     Indication: ACUTE LYMPHOCYTIC LEUKAEMIA

REACTIONS (7)
  - Aplasia [Not Recovered/Not Resolved]
  - Candida sepsis [Not Recovered/Not Resolved]
  - Acute respiratory distress syndrome [Not Recovered/Not Resolved]
  - Thrombocytopenia [Fatal]
  - Septic shock [Not Recovered/Not Resolved]
  - Intestinal obstruction [Not Recovered/Not Resolved]
  - Brain death [Fatal]

NARRATIVE: CASE EVENT DATE: 20210805
